FAERS Safety Report 14370974 (Version 1)
Quarter: 2018Q1

REPORT INFORMATION
  Report Type: Spontaneous
  Country: NL (occurrence: NL)
  Receive Date: 20180110
  Receipt Date: 20180110
  Transmission Date: 20180509
  Serious: Yes (Death)
  Sender: FDA-Public Use
  Company Number: NL-ROCHE-2053077

PATIENT

DRUGS (1)
  1. CAPECITABINE. [Suspect]
     Active Substance: CAPECITABINE
     Indication: PRODUCT USED FOR UNKNOWN INDICATION
     Dosage: PALLIATIVE TREATMENT WITH CHEMPTHERAPY (NOT OTHERWISE SPECIFIED (NOS))
     Route: 065

REACTIONS (1)
  - Diarrhoea [Fatal]
